FAERS Safety Report 4354176-5 (Version None)
Quarter: 2004Q2

REPORT INFORMATION
  Report Type: 
  Country: None (occurrence: None)
  Receive Date: 20040506
  Receipt Date: 20040401
  Transmission Date: 20050107
  Serious: Yes (Other)
  Sender: FDA-Public Use
  Company Number: PHBS2004JP04512

PATIENT
  Age: 44 Year
  Sex: Male

DRUGS (1)
  1. DIOVAN [Suspect]
     Indication: CARDIAC DISORDER
     Dates: start: 20040131, end: 20040228

REACTIONS (2)
  - ERYTHEMA MULTIFORME [None]
  - RASH [None]
